FAERS Safety Report 16798321 (Version 1)
Quarter: 2019Q3

REPORT INFORMATION
  Report Type: Spontaneous
  Country: NL (occurrence: NL)
  Receive Date: 20190912
  Receipt Date: 20190912
  Transmission Date: 20191005
  Serious: Yes (Hospitalization)
  Sender: FDA-Public Use
  Company Number: NL-ACCORD-154619

PATIENT
  Sex: Female
  Weight: 75 kg

DRUGS (1)
  1. ESCITALOPRAM [Suspect]
     Active Substance: ESCITALOPRAM OXALATE
     Indication: ANXIETY
     Dosage: 1X PD
     Dates: start: 20100101, end: 20190601

REACTIONS (1)
  - Osteoporosis [Not Recovered/Not Resolved]
